FAERS Safety Report 13393767 (Version 1)
Quarter: 2017Q1

REPORT INFORMATION
  Report Type: Report from Study
  Country: US (occurrence: US)
  Receive Date: 20170331
  Receipt Date: 20170331
  Transmission Date: 20170429
  Serious: Yes (Hospitalization, Other)
  Sender: FDA-Public Use
  Company Number: US-SAOL THERAPEUTICS-0700476867

PATIENT
  Sex: Female

DRUGS (3)
  1. DILAUDID [Suspect]
     Active Substance: HYDROMORPHONE HYDROCHLORIDE
     Dosage: UNK
  2. COMPOUNDED BACLOFEN [Suspect]
     Active Substance: BACLOFEN
     Indication: PAIN
     Dosage: 11.395 ?G, \DAY
     Route: 037
     Dates: start: 20130710, end: 20131029
  3. DILAUDID [Suspect]
     Active Substance: HYDROMORPHONE HYDROCHLORIDE
     Dosage: 5.697 MG, \DAY
     Route: 037
     Dates: end: 20131029

REACTIONS (6)
  - Fall [Unknown]
  - Device failure [Unknown]
  - Arthralgia [Unknown]
  - Pain in extremity [Unknown]
  - Off label use [Unknown]
  - Complication associated with device [Unknown]
